FAERS Safety Report 9097444 (Version 1)
Quarter: 2013Q1

REPORT INFORMATION
  Report Type: Spontaneous
  Country: US (occurrence: US)
  Receive Date: 20130212
  Receipt Date: 20130212
  Transmission Date: 20140127
  Serious: Yes (Death, Other)
  Sender: FDA-Public Use
  Company Number: US-ELI_LILLY_AND_COMPANY-US201302001674

PATIENT
  Age: 51 Year
  Sex: Female

DRUGS (6)
  1. FLUOXETINE HYDROCHLORIDE [Suspect]
  2. CODEINE [Concomitant]
  3. HYDROCODONE W/APAP [Concomitant]
  4. PROPOXYPHENE [Concomitant]
  5. ETHANOL [Concomitant]
  6. AMITRIPTYLINE [Concomitant]

REACTIONS (2)
  - Cardio-respiratory arrest [Fatal]
  - Drug abuse [Fatal]
